FAERS Safety Report 4482082-4 (Version None)
Quarter: 2004Q4

REPORT INFORMATION
  Report Type: 
  Country: None (occurrence: None)
  Receive Date: 20041022
  Receipt Date: 20040820
  Transmission Date: 20050328
  Serious: Yes (Hospitalization, Other)
  Sender: FDA-Public Use
  Company Number: 200416325US

PATIENT
  Sex: Female

DRUGS (14)
  1. ARAVA [Suspect]
     Indication: RHEUMATOID ARTHRITIS
     Dates: start: 20011101
  2. METHOTREXATE [Suspect]
     Indication: RHEUMATOID ARTHRITIS
  3. PREDNISONE [Suspect]
     Indication: RHEUMATOID ARTHRITIS
  4. TOPROL-XL [Concomitant]
     Indication: HYPERTENSION
     Dosage: DOSE: UNKNOWN
  5. VICODIN [Concomitant]
     Dosage: DOSE: UNKNOWN
  6. IRON [Concomitant]
     Dosage: DOSE: UNKNOWN
  7. NEURONTIN [Concomitant]
     Dosage: DOSE: UNKNOWN
  8. LIPITOR [Concomitant]
     Dosage: DOSE: UNKNOWN
  9. ZESTRIL [Concomitant]
     Dosage: DOSE: UNKNOWN
  10. ASPIRIN [Concomitant]
     Dosage: DOSE: UNKNOWN
  11. VIOXX [Concomitant]
     Dosage: DOSE: UNKNOWN
  12. DETROL [Concomitant]
     Dosage: DOSE: UNKNOWN
  13. CELEBREX [Concomitant]
     Dosage: DOSE: UNKNOWN
  14. FOSAMAX [Concomitant]
     Dosage: DOSE: UNKNOWN

REACTIONS (33)
  - ABDOMINAL PAIN [None]
  - ALANINE AMINOTRANSFERASE INCREASED [None]
  - ANAEMIA [None]
  - ASPARTATE AMINOTRANSFERASE INCREASED [None]
  - ASTHENIA [None]
  - ATELECTASIS [None]
  - BILATERAL HYDRONEPHROSIS [None]
  - BLOOD ALKALINE PHOSPHATASE INCREASED [None]
  - BLOOD BILIRUBIN INCREASED [None]
  - BLOOD CREATINE PHOSPHOKINASE INCREASED [None]
  - BLOOD CREATININE INCREASED [None]
  - DEHYDRATION [None]
  - DIARRHOEA [None]
  - DYSPNOEA [None]
  - HAEMATOCRIT DECREASED [None]
  - HAEMOGLOBIN DECREASED [None]
  - HEPATIC ENZYME INCREASED [None]
  - HYPERCOAGULATION [None]
  - HYPERKALAEMIA [None]
  - HYPOTENSION [None]
  - NAUSEA [None]
  - OLIGURIA [None]
  - PLATELET COUNT INCREASED [None]
  - PLEURAL EFFUSION [None]
  - PROTHROMBIN TIME PROLONGED [None]
  - PSOAS ABSCESS [None]
  - PYREXIA [None]
  - RED BLOOD CELL COUNT DECREASED [None]
  - RENAL FAILURE [None]
  - SEPSIS [None]
  - SINUS TACHYCARDIA [None]
  - VOMITING [None]
  - WHITE BLOOD CELL COUNT INCREASED [None]
